FAERS Safety Report 5894040-3 (Version None)
Quarter: 2008Q3

REPORT INFORMATION
  Report Type: 
  Country: None (occurrence: None)
  Receive Date: 20080923
  Receipt Date: 20080912
  Transmission Date: 20090109
  Serious: Yes (Hospitalization)
  Sender: FDA-Public Use
  Company Number: US-ELI_LILLY_AND_COMPANY-US200809003078

PATIENT
  Age: 53 Year
  Sex: Female

DRUGS (5)
  1. HUMULIN 70/30 [Suspect]
     Dosage: UNK, EACH MORNING
     Dates: start: 20000101
  2. HUMULIN R [Suspect]
     Dosage: UNK, DAILY (1/D)
     Dates: start: 20000101
  3. HUMULIN N [Suspect]
     Dosage: UNK, EACH EVENING
     Dates: start: 20000101
  4. LISINOPRIL HYDROCHLORTHIAZID [Concomitant]
  5. ASPIRIN [Concomitant]

REACTIONS (4)
  - BLOOD GLUCOSE INCREASED [None]
  - NEUROPATHY PERIPHERAL [None]
  - RENAL DISORDER [None]
  - URINARY TRACT INFECTION [None]
